FAERS Safety Report 5248149-8 (Version None)
Quarter: 2007Q1

REPORT INFORMATION
  Report Type: 
  Country: None (occurrence: None)
  Receive Date: 20070227
  Receipt Date: 20060322
  Transmission Date: 20070707
  Serious: No
  Sender: FDA-Public Use
  Company Number: US-BRISTOL-MYERS SQUIBB COMPANY-13323191

PATIENT
  Age: 61 Year
  Sex: Male
  Weight: 116 kg

DRUGS (8)
  1. GLUCOPHAGE [Suspect]
     Indication: DIABETES MELLITUS
  2. TOPROL-XL [Concomitant]
  3. TYLENOL W/ CODEINE [Concomitant]
  4. ASPIRIN [Concomitant]
  5. NEURONTIN [Concomitant]
  6. ZOLOFT [Concomitant]
  7. K-DUR 10 [Concomitant]
  8. SOMA [Concomitant]

REACTIONS (2)
  - BLOOD GLUCOSE INCREASED [None]
  - DRUG INEFFECTIVE [None]
